FAERS Safety Report 4659092-7 (Version None)
Quarter: 2005Q2

REPORT INFORMATION
  Report Type: 
  Country: None (occurrence: None)
  Receive Date: 20050509
  Receipt Date: 20050425
  Transmission Date: 20051028
  Serious: Yes (Death, Life-Threatening, Hospitalization, Other)
  Sender: FDA-Public Use
  Company Number: A-CH2005-09582

PATIENT
  Age: 39 Year
  Sex: Male
  Weight: 70 kg

DRUGS (10)
  1. TRACLEER [Suspect]
     Indication: PULMONARY HYPERTENSION
     Dosage: 62.5 + 125 MG, BID, ORAL
     Route: 048
     Dates: start: 20031031, end: 20031124
  2. TRACLEER [Suspect]
     Indication: PULMONARY HYPERTENSION
     Dosage: 62.5 + 125 MG, BID, ORAL
     Route: 048
     Dates: start: 20031125, end: 20050411
  3. CLOPIDOGREL BISULFATE [Concomitant]
  4. DIGOTOXIN             (DIGITOXIN) [Concomitant]
  5. SILDENAFIL CITRATE [Concomitant]
  6. TRAPIDIL          (TRAPIDIL) [Concomitant]
  7. PREDNISOLONE [Concomitant]
  8. RAMIPRIL [Concomitant]
  9. OSYROL   (SPIRONOLACTONE) [Concomitant]
  10. NEBIVOLOL (NEBIVOLOL) [Concomitant]

REACTIONS (9)
  - ALANINE AMINOTRANSFERASE INCREASED [None]
  - ASPARTATE AMINOTRANSFERASE INCREASED [None]
  - ATRIAL FIBRILLATION [None]
  - BLOOD LACTATE DEHYDROGENASE INCREASED [None]
  - CARDIAC FAILURE [None]
  - MULTI-ORGAN FAILURE [None]
  - PNEUMONIA [None]
  - RENAL IMPAIRMENT [None]
  - SEPTIC SHOCK [None]
